FAERS Safety Report 11440227 (Version 1)
Quarter: 2015Q3

REPORT INFORMATION
  Report Type: Spontaneous
  Country: US (occurrence: US)
  Receive Date: 20150901
  Receipt Date: 20150901
  Transmission Date: 20151125
  Serious: No
  Sender: FDA-Public Use
  Company Number: US-ROCHE-1154248

PATIENT
  Sex: Male

DRUGS (2)
  1. INCIVEK [Suspect]
     Active Substance: TELAPREVIR
     Indication: HEPATITIS C
     Route: 065
  2. PEGASYS [Suspect]
     Active Substance: PEGINTERFERON ALFA-2A
     Indication: HEPATITIS C
     Route: 058

REACTIONS (17)
  - Dyspnoea [Unknown]
  - Abnormal sensation in eye [Unknown]
  - Sensation of foreign body [Unknown]
  - Sensory disturbance [Unknown]
  - Constipation [Unknown]
  - Anal haemorrhage [Unknown]
  - Psychiatric symptom [Not Recovered/Not Resolved]
  - Gastric disorder [Unknown]
  - Chills [Unknown]
  - Defaecation urgency [Unknown]
  - Pain [Unknown]
  - Activities of daily living impaired [Not Recovered/Not Resolved]
  - Hot flush [Unknown]
  - Feeling cold [Unknown]
  - Visual impairment [Unknown]
  - Abasia [Unknown]
  - Influenza like illness [Unknown]
